FAERS Safety Report 7966571-3 (Version None)
Quarter: 2011Q4

REPORT INFORMATION
  Report Type: 
  Country: None (occurrence: None)
  Receive Date: 20111208
  Receipt Date: 20100506
  Transmission Date: 20120403
  Serious: Yes (Hospitalization, Other)
  Sender: FDA-Public Use
  Company Number: PHHY2010TW39527

PATIENT
  Sex: Female

DRUGS (2)
  1. GLEEVEC [Suspect]
     Indication: GASTROINTESTINAL STROMAL TUMOUR
     Dosage: 400 MG, UNK
     Route: 048
     Dates: start: 20090602, end: 20100901
  2. GLEEVEC [Suspect]
     Dosage: 400 MG, BID

REACTIONS (14)
  - OSTEOPOROSIS [None]
  - SPEECH DISORDER [None]
  - GASTROINTESTINAL MOTILITY DISORDER [None]
  - FAECES DISCOLOURED [None]
  - ABDOMINAL DISCOMFORT [None]
  - BONE PAIN [None]
  - GASTROINTESTINAL DISORDER [None]
  - HEAD INJURY [None]
  - PAIN [None]
  - VOMITING [None]
  - ANAEMIA [None]
  - FALL [None]
  - SPINAL DISORDER [None]
  - BACK PAIN [None]
